FAERS Safety Report 23331431 (Version 1)
Quarter: 2023Q4

REPORT INFORMATION
  Report Type: Spontaneous
  Country: US (occurrence: None)
  Receive Date: 20231222
  Receipt Date: 20231222
  Transmission Date: 20240110
  Serious: Yes (Hospitalization)
  Sender: FDA-Public Use
  Company Number: None

PATIENT
  Age: 73 Year
  Sex: Female
  Weight: 69.2 kg

DRUGS (2)
  1. XELODA [Suspect]
     Active Substance: CAPECITABINE
     Dates: end: 20231128
  2. ELOXATIN [Suspect]
     Active Substance: OXALIPLATIN
     Dates: end: 20231115

REACTIONS (25)
  - Hypoaesthesia oral [None]
  - Sensation of foreign body [None]
  - Infusion related reaction [None]
  - Hypoaesthesia [None]
  - Dyspnoea [None]
  - Stridor [None]
  - Nausea [None]
  - Asthenia [None]
  - Diarrhoea [None]
  - Hypophagia [None]
  - Electrocardiogram ST segment depression [None]
  - Troponin increased [None]
  - Electrocardiogram ST segment elevation [None]
  - Enteritis [None]
  - Haematoma [None]
  - Blood pressure systolic increased [None]
  - Abdominal tenderness [None]
  - Abdominal distension [None]
  - Tachycardia [None]
  - Tachypnoea [None]
  - Hypervolaemia [None]
  - Blood pressure decreased [None]
  - Pneumatosis [None]
  - Internal hernia [None]
  - Metabolic acidosis [None]

NARRATIVE: CASE EVENT DATE: 20231203
